FAERS Safety Report 12762838 (Version 1)
Quarter: 2016Q3

REPORT INFORMATION
  Report Type: Spontaneous
  Country: US (occurrence: US)
  Receive Date: 20160920
  Receipt Date: 20160920
  Transmission Date: 20161109
  Serious: Yes (Hospitalization, Other)
  Sender: FDA-Public Use
  Company Number: US-JNJFOC-20160918256

PATIENT
  Sex: Female
  Weight: 78.5 kg

DRUGS (6)
  1. ADEMPAS [Suspect]
     Active Substance: RIOCIGUAT
     Indication: PULMONARY ARTERIAL HYPERTENSION
     Route: 048
     Dates: start: 20150925
  2. ADEMPAS [Suspect]
     Active Substance: RIOCIGUAT
     Indication: PULMONARY ARTERIAL HYPERTENSION
     Route: 048
  3. XARELTO [Suspect]
     Active Substance: RIVAROXABAN
     Indication: PRODUCT USED FOR UNKNOWN INDICATION
     Route: 048
  4. ADEMPAS [Suspect]
     Active Substance: RIOCIGUAT
     Indication: PULMONARY ARTERIAL HYPERTENSION
     Route: 048
  5. ADEMPAS [Suspect]
     Active Substance: RIOCIGUAT
     Indication: PULMONARY ARTERIAL HYPERTENSION
     Route: 048
  6. ADEMPAS [Suspect]
     Active Substance: RIOCIGUAT
     Indication: PULMONARY ARTERIAL HYPERTENSION
     Route: 048

REACTIONS (11)
  - Walking distance test abnormal [Unknown]
  - Asthenia [Unknown]
  - Product use issue [Unknown]
  - Oedema peripheral [Unknown]
  - Cardiac operation [Unknown]
  - Pulmonary endarterectomy [Unknown]
  - Rehabilitation therapy [Unknown]
  - Pulmonary thrombosis [Unknown]
  - Procedural complication [Unknown]
  - Nausea [Unknown]
  - Localised oedema [Unknown]
